FAERS Safety Report 15863351 (Version 1)
Quarter: 2019Q1

REPORT INFORMATION
  Report Type: Spontaneous
  Country: US (occurrence: US)
  Receive Date: 20190124
  Receipt Date: 20190124
  Transmission Date: 20190417
  Serious: No
  Sender: FDA-Public Use
  Company Number: US-LUNDBECK-DKLU2059623

PATIENT

DRUGS (8)
  1. CANNABIDIOL [Suspect]
     Active Substance: CANNABIDIOL
     Indication: LENNOX-GASTAUT SYNDROME
  2. CLOBAZAM. [Suspect]
     Active Substance: CLOBAZAM
     Indication: LENNOX-GASTAUT SYNDROME
  3. CANNABIDIOL [Suspect]
     Active Substance: CANNABIDIOL
     Indication: DRUG RESISTANCE
  4. CLOBAZAM. [Suspect]
     Active Substance: CLOBAZAM
     Indication: EPILEPSY
     Route: 065
  5. CLOBAZAM. [Suspect]
     Active Substance: CLOBAZAM
     Indication: ATONIC SEIZURES
  6. CLOBAZAM. [Suspect]
     Active Substance: CLOBAZAM
     Indication: DRUG RESISTANCE
  7. CANNABIDIOL [Suspect]
     Active Substance: CANNABIDIOL
     Indication: ATONIC SEIZURES
  8. CANNABIDIOL [Suspect]
     Active Substance: CANNABIDIOL
     Indication: EPILEPSY
     Route: 065

REACTIONS (1)
  - Somnolence [Unknown]
